FAERS Safety Report 5911407-5 (Version None)
Quarter: 2008Q4

REPORT INFORMATION
  Report Type: 
  Country: None (occurrence: None)
  Receive Date: 20081002
  Receipt Date: 20080919
  Transmission Date: 20090506
  Serious: Yes (Other)
  Sender: FDA-Public Use
  Company Number: US024665

PATIENT
  Age: 47 Year
  Sex: Female

DRUGS (4)
  1. ACTIQ [Suspect]
     Indication: PAIN
     Dosage: BUCCAL
     Route: 002
  2. ACTIQ [Suspect]
     Indication: SURGERY
     Dosage: BUCCAL
     Route: 002
  3. ACTIQ [Suspect]
     Indication: TOOTH DISORDER
     Dosage: BUCCAL
     Route: 002
  4. FENTORA [Concomitant]

REACTIONS (5)
  - DEPRESSION [None]
  - FEELING OF DESPAIR [None]
  - MEDICATION ERROR [None]
  - SUICIDAL IDEATION [None]
  - SUICIDE ATTEMPT [None]
